FAERS Safety Report 11504819 (Version 1)
Quarter: 2015Q3

REPORT INFORMATION
  Report Type: Spontaneous
  Country: US (occurrence: US)
  Receive Date: 20150915
  Receipt Date: 20150915
  Transmission Date: 20151125
  Serious: No
  Sender: FDA-Public Use
  Company Number: US-ROCHE-767869

PATIENT
  Sex: Male

DRUGS (2)
  1. PEGASYS [Suspect]
     Active Substance: PEGINTERFERON ALFA-2A
     Indication: HEPATITIS C
     Route: 065
  2. RIBAVIRIN. [Suspect]
     Active Substance: RIBAVIRIN
     Indication: HEPATITIS C
     Dosage: DIVIDED DOSES
     Route: 048

REACTIONS (8)
  - Blood pressure decreased [Unknown]
  - Blood glucose abnormal [Unknown]
  - Weight decreased [Unknown]
  - Hypoventilation [Recovering/Resolving]
  - Muscular weakness [Recovering/Resolving]
  - Glossitis [Unknown]
  - Balance disorder [Recovering/Resolving]
  - Glossodynia [Unknown]
